FAERS Safety Report 22224439 (Version 7)
Quarter: 2023Q2

REPORT INFORMATION
  Report Type: Report from Study
  Country: NZ (occurrence: None)
  Receive Date: 20230418
  Receipt Date: 20230626
  Transmission Date: 20230721
  Serious: Yes (Hospitalization)
  Sender: FDA-Public Use
  Company Number: NZ-Eisai Inc (Eisai China)-EC-2023-138397

PATIENT
  Age: 62 Year
  Sex: Male
  Weight: 79.6 kg

DRUGS (23)
  1. LENVATINIB [Suspect]
     Active Substance: LENVATINIB
     Indication: Hormone-refractory prostate cancer
     Dosage: STARTING DOSE AT 20 MILLIGRAM, FLUCTUATED DOSE
     Route: 048
     Dates: start: 20220509, end: 20230409
  2. LENVATINIB [Suspect]
     Active Substance: LENVATINIB
     Indication: Prostate cancer metastatic
     Route: 048
     Dates: start: 20230410, end: 20230410
  3. LENVATINIB [Suspect]
     Active Substance: LENVATINIB
     Indication: Hormone-refractory prostate cancer
  4. PEMBROLIZUMAB [Suspect]
     Active Substance: PEMBROLIZUMAB
     Indication: Hormone-refractory prostate cancer
     Route: 041
     Dates: start: 20220509, end: 20230321
  5. PEMBROLIZUMAB [Suspect]
     Active Substance: PEMBROLIZUMAB
     Indication: Prostate cancer metastatic
  6. PEMBROLIZUMAB [Suspect]
     Active Substance: PEMBROLIZUMAB
     Indication: Hormone-refractory prostate cancer
  7. GOSERELIN [Concomitant]
     Active Substance: GOSERELIN
     Dates: start: 20171014
  8. PREDNISONE [Concomitant]
     Active Substance: PREDNISONE
     Dates: start: 20211120
  9. ZOPICLONE [Concomitant]
     Active Substance: ZOPICLONE
     Dates: start: 201801
  10. OMEPRAZOLE [Concomitant]
     Active Substance: OMEPRAZOLE
     Dates: start: 201501
  11. ALBUTEROL [Concomitant]
     Active Substance: ALBUTEROL
     Dates: start: 198001
  12. BISOPROLOL [Concomitant]
     Active Substance: BISOPROLOL
     Dates: start: 20220126, end: 20230410
  13. AMIODARONE [Concomitant]
     Active Substance: AMIODARONE
     Dates: start: 20220304
  14. MORPHINE SULFATE [Concomitant]
     Active Substance: MORPHINE SULFATE
     Dates: start: 20220404
  15. DOCUSATE SODIUM\SENNOSIDES A AND B [Concomitant]
     Active Substance: DOCUSATE SODIUM\SENNOSIDES A AND B
     Dates: start: 20220404
  16. ZOLEDRONIC ACID [Concomitant]
     Active Substance: ZOLEDRONIC ACID
     Dates: start: 20211207
  17. LAX SACHETS [Concomitant]
     Dates: start: 20220404
  18. GABAPENTIN [Concomitant]
     Active Substance: GABAPENTIN
     Dates: start: 20190408, end: 20230413
  19. MORPHINE [Concomitant]
     Active Substance: MORPHINE
     Dates: start: 20220404
  20. LOSARTAN [Concomitant]
     Active Substance: LOSARTAN
     Dates: start: 20220607
  21. ACETAMINOPHEN [Concomitant]
     Active Substance: ACETAMINOPHEN
     Dates: start: 20220531
  22. IBUPROFEN [Concomitant]
     Active Substance: IBUPROFEN
     Dates: start: 20220531, end: 20230410
  23. LEVOTHYROXINE SODIUM [Concomitant]
     Active Substance: LEVOTHYROXINE SODIUM
     Dates: start: 20220823

REACTIONS (1)
  - Arterial intramural haematoma [Recovered/Resolved with Sequelae]

NARRATIVE: CASE EVENT DATE: 20230328
